FAERS Safety Report 11166725 (Version 2)
Quarter: 2015Q2

REPORT INFORMATION
  Report Type: Spontaneous
  Country: JP (occurrence: None)
  Receive Date: 20150603
  Receipt Date: 20150610
  Transmission Date: 20150821
  Serious: Yes (Death, Other)
  Sender: FDA-Public Use
  Company Number: 2015-11427

PATIENT
  Age: 81 Year
  Sex: Male

DRUGS (4)
  1. EYLEA [Suspect]
     Active Substance: AFLIBERCEPT
     Indication: AGE-RELATED MACULAR DEGENERATION
     Route: 031
     Dates: start: 20140819, end: 20140819
  2. GENTACIN (GENTAMICIN SULFATE) [Concomitant]
     Active Substance: GENTAMICIN SULFATE
  3. SANCOBA (CYANOCOBALAMIN) [Concomitant]
  4. CRAVIT (LEVOFLOXACIN) EYE DROPS, 0.5% [Concomitant]
     Active Substance: LEVOFLOXACIN

REACTIONS (8)
  - Restlessness [None]
  - Feeding disorder [None]
  - Depressed level of consciousness [None]
  - Sudden death [None]
  - Asthenia [None]
  - Metastases to gastrointestinal tract [None]
  - Abdominal pain [None]
  - Malignant neoplasm of unknown primary site [None]

NARRATIVE: CASE EVENT DATE: 20150421
